FAERS Safety Report 6673869-8 (Version None)
Quarter: 2010Q2

REPORT INFORMATION
  Report Type: 
  Country: None (occurrence: None)
  Receive Date: 20100409
  Receipt Date: 20100331
  Transmission Date: 20101027
  Serious: Yes (Hospitalization)
  Sender: FDA-Public Use
  Company Number: US-BIOGENIDEC-2010BI003946

PATIENT
  Age: 0 Day
  Sex: Female
  Weight: 4 kg

DRUGS (1)
  1. TYSABRI [Suspect]
     Indication: DRUG EXPOSURE DURING PREGNANCY
     Route: 064
     Dates: start: 20080313, end: 20090521

REACTIONS (2)
  - FOETAL HEART RATE DECELERATION [None]
  - SUPRAVENTRICULAR EXTRASYSTOLES [None]
